FAERS Safety Report 8835586 (Version 1)
Quarter: 2012Q4

REPORT INFORMATION
  Report Type: 
  Country: BE (occurrence: BE)
  Receive Date: 20121011
  Receipt Date: 20121011
  Transmission Date: 20130627
  Serious: Yes (Other)
  Sender: FDA-Public Use
  Company Number: PHHY2012BE063693

PATIENT
  Age: 50 Year
  Sex: Female

DRUGS (3)
  1. GILENYA [Suspect]
     Indication: MULTIPLE SCLEROSIS
     Dosage: 0.5 mg, QD
     Dates: start: 20111206, end: 20120715
  2. COVERAM [Concomitant]
     Indication: HYPERTENSION
     Dosage: 5 mg, QD
  3. SIPRALEXA [Concomitant]
     Indication: DEPRESSION
     Dosage: UNK UKN, UNK

REACTIONS (4)
  - Hypertension [Unknown]
  - Macular oedema [Unknown]
  - Visual impairment [Unknown]
  - Retinal detachment [Unknown]
